FAERS Safety Report 10496290 (Version 3)
Quarter: 2015Q1

REPORT INFORMATION
  Report Type: Report from Study
  Country: NL (occurrence: NL)
  Receive Date: 20141003
  Receipt Date: 20150320
  Transmission Date: 20150720
  Serious: Yes (Life-Threatening, Hospitalization)
  Sender: FDA-Public Use
  Company Number: NL-CELGENE-114-50794-14075297

PATIENT
  Age: 69 Year
  Sex: Female
  Weight: 59 kg

DRUGS (12)
  1. COLCHICINE. [Concomitant]
     Active Substance: COLCHICINE
     Indication: PRODUCT USED FOR UNKNOWN INDICATION
     Route: 065
     Dates: start: 20130206
  2. COUMARIN [Concomitant]
     Active Substance: COUMARIN
     Indication: ATRIAL FIBRILLATION
     Dosage: 1000 MILLIGRAM
     Route: 065
     Dates: start: 2006, end: 20140804
  3. AZACITIDINE. [Suspect]
     Active Substance: AZACITIDINE
     Route: 058
     Dates: start: 20140722, end: 20140819
  4. METOCLOPRAMIDE. [Concomitant]
     Active Substance: METOCLOPRAMIDE
     Indication: ANTIEMETIC SUPPORTIVE CARE
     Route: 065
     Dates: start: 20121227
  5. PREDNISOLON [Concomitant]
     Active Substance: PREDNISOLONE
     Route: 048
     Dates: start: 20130527, end: 20130626
  6. GRANISETRON [Concomitant]
     Active Substance: GRANISETRON
     Indication: ANTIEMETIC SUPPORTIVE CARE
     Route: 065
     Dates: start: 20130307
  7. PREDNISOLON [Concomitant]
     Active Substance: PREDNISOLONE
     Indication: NEOPLASM
     Route: 048
     Dates: start: 20130426
  8. CARBASALAATCALCIUM [Concomitant]
     Active Substance: CARBASALATE
     Indication: ATRIAL FIBRILLATION
     Route: 048
     Dates: start: 20140811
  9. ACENOCOUMAROL [Concomitant]
     Active Substance: ACENOCOUMAROL
     Indication: PRODUCT USED FOR UNKNOWN INDICATION
     Route: 065
     Dates: start: 2006
  10. OXYCODON [Concomitant]
     Active Substance: OXYCODONE
     Indication: PRODUCT USED FOR UNKNOWN INDICATION
     Route: 065
     Dates: start: 20121224
  11. AZACITIDINE. [Suspect]
     Active Substance: AZACITIDINE
     Indication: MYELODYSPLASTIC SYNDROME
     Route: 058
     Dates: start: 20130104
  12. COUMARIN [Concomitant]
     Active Substance: COUMARIN
     Route: 065
     Dates: start: 20140808

REACTIONS (3)
  - Sepsis [Recovered/Resolved]
  - Cerebrovascular accident [Recovered/Resolved with Sequelae]
  - Sepsis [Recovered/Resolved]

NARRATIVE: CASE EVENT DATE: 20140708
